FAERS Safety Report 14707944 (Version 1)
Quarter: 2018Q2

REPORT INFORMATION
  Report Type: Spontaneous
  Country: US (occurrence: US)
  Receive Date: 20180403
  Receipt Date: 20180403
  Transmission Date: 20180711
  Serious: No
  Sender: FDA-Public Use
  Company Number: US-PFIZER INC-2018132174

PATIENT
  Age: 7 Year
  Sex: Male
  Weight: 28.58 kg

DRUGS (4)
  1. QUILLIVANT XR [Suspect]
     Active Substance: METHYLPHENIDATE HYDROCHLORIDE
     Indication: ATTENTION DEFICIT/HYPERACTIVITY DISORDER
     Dosage: 2.5 ML, 1X/DAY (2.5 ML LIQUID)
     Route: 048
  2. METHYLPHENIDATE HYDROCHLORIDE. [Suspect]
     Active Substance: METHYLPHENIDATE HYDROCHLORIDE
     Indication: ATTENTION DEFICIT/HYPERACTIVITY DISORDER
     Dosage: 10 MG, 1X/DAY
     Route: 048
  3. MULTIVITAMINS /00116001/ [Concomitant]
     Active Substance: VITAMINS
     Dosage: UNK
  4. METHYLIN [Suspect]
     Active Substance: METHYLPHENIDATE HYDROCHLORIDE
     Indication: ATTENTION DEFICIT/HYPERACTIVITY DISORDER
     Dosage: 6.25 ML, 2X/DAY
     Route: 048
     Dates: start: 201603

REACTIONS (2)
  - Mood swings [Unknown]
  - Anger [Unknown]

NARRATIVE: CASE EVENT DATE: 201803
